FAERS Safety Report 12178096 (Version 1)
Quarter: 2016Q1

REPORT INFORMATION
  Report Type: Spontaneous
  Country: US (occurrence: US)
  Receive Date: 20160315
  Receipt Date: 20160315
  Transmission Date: 20160526
  Serious: Yes (Death)
  Sender: FDA-Public Use
  Company Number: US-PFIZER INC-2015183223

PATIENT
  Age: 71 Year
  Sex: Female
  Weight: 53.98 kg

DRUGS (22)
  1. TUDORZA PRESSAIR [Concomitant]
     Active Substance: ACLIDINIUM BROMIDE
     Indication: BRONCHOSPASM
  2. LASIX [Concomitant]
     Active Substance: FUROSEMIDE
     Indication: OEDEMA
     Dosage: 40 MG, DAILY (2 TABLETS BY MOUTH DAILY AS NEEDED)
     Route: 048
  3. TUDORZA PRESSAIR [Concomitant]
     Active Substance: ACLIDINIUM BROMIDE
     Indication: CHRONIC OBSTRUCTIVE PULMONARY DISEASE
     Dosage: 400 UG, AS NEEDED (400 MCG/ACTUATION, INHALE 1 PUFF INTO THE LUNGS)
  4. TIKOSYN [Concomitant]
     Active Substance: DOFETILIDE
     Indication: ATRIAL FIBRILLATION
     Dosage: 125 UG, 2X/DAY
     Route: 048
  5. ZESTRIL [Concomitant]
     Active Substance: LISINOPRIL
     Dosage: 2.5 MG, DAILY
     Route: 048
  6. MAGNESIUM [Concomitant]
     Active Substance: MAGNESIUM
     Dosage: 250 MG, 2X/DAY (WITH ZINC)
     Route: 048
  7. AROMASIN [Suspect]
     Active Substance: EXEMESTANE
     Indication: BREAST CANCER
     Dosage: 25 MG, 1X/DAY
  8. CALCIUM 600 PLUS VITAMIN D3 [Concomitant]
     Dosage: 1 DF, DAILY
     Route: 048
  9. PRINIVIL [Concomitant]
     Active Substance: LISINOPRIL
     Dosage: 2.5 MG, DAILY
     Route: 048
  10. FISH OIL [Concomitant]
     Active Substance: FISH OIL
     Dosage: 1000 MG, 2X/DAY
     Route: 048
  11. BENADRYL [Concomitant]
     Active Substance: DIPHENHYDRAMINE HYDROCHLORIDE
     Dosage: 50 MG, AS NEEDED (EVERY 6 HOURS)
  12. DELTASONE [Concomitant]
     Active Substance: PREDNISONE
     Dosage: 50 MG, UNK (13 HOURS PRIOR, 7HOURS PRIOR AND 1 HOUR PRIOR TO EXAM )
  13. OXYGEN. [Concomitant]
     Active Substance: OXYGEN
     Indication: HYPOXIA
     Dosage: 2 L, 1X/DAY (AT NIGHT DURING SLEEP)
  14. SYMBICORT [Concomitant]
     Active Substance: BUDESONIDE\FORMOTEROL FUMARATE DIHYDRATE
     Indication: CHRONIC OBSTRUCTIVE PULMONARY DISEASE
     Dosage: 2 DF, AS NEEDED (BUDESONIDE- 160 MCG/FORMOTEROL- 4.5MCG, INHALE 2 PUFF INTO THE LUNGS)
  15. SYMBICORT [Concomitant]
     Active Substance: BUDESONIDE\FORMOTEROL FUMARATE DIHYDRATE
     Indication: BRONCHITIS CHRONIC
  16. K-DUR [Concomitant]
     Active Substance: POTASSIUM CHLORIDE
     Indication: HYPOKALAEMIA
     Dosage: 10 MEQ, DAILY (1 TABLET BY MOUTH DAILY AS NEEDED)
     Route: 048
  17. RITUXAN [Concomitant]
     Active Substance: RITUXIMAB
     Indication: RHEUMATOID ARTHRITIS
     Dosage: 10 MG/ML, UNK (EVERY 6 MONTHS)
     Route: 042
  18. ARIMIDEX [Concomitant]
     Active Substance: ANASTROZOLE
     Dosage: 1 MG, DAILY
     Route: 048
  19. LIPITOR [Concomitant]
     Active Substance: ATORVASTATIN CALCIUM
     Dosage: 40 MG, DAILY
     Route: 048
  20. NORCO [Concomitant]
     Active Substance: ACETAMINOPHEN\HYDROCODONE BITARTRATE
     Indication: PAIN
     Dosage: 2 DF, AS NEEDED (2 TABLETS BY MOUTH EVERY 6 HOURS AS NEEDED) (HYDROCODONE-5 MG/ACETAMINOPHEN-325 MG)
     Route: 048
  21. HEXAVITAMINS [Concomitant]
     Dosage: 1 DF, DAILY
     Route: 048
  22. COUMADIN [Concomitant]
     Active Substance: WARFARIN SODIUM
     Dosage: 6 MG, DAILY (3 TABS DAILY AS DIRECTED BASED ON INR)

REACTIONS (3)
  - Disease progression [Fatal]
  - Thyroid cancer [Fatal]
  - Breast cancer [Fatal]
